FAERS Safety Report 5295600-3 (Version None)
Quarter: 2007Q1

REPORT INFORMATION
  Report Type: 
  Country: None (occurrence: None)
  Receive Date: 20070201
  Receipt Date: 20061014
  Transmission Date: 20070707
  Serious: No
  Sender: FDA-Public Use
  Company Number: 2006PV023224

PATIENT
  Age: 64 Year
  Sex: Male
  Weight: 108.8633 kg

DRUGS (5)
  1. BYETTA [Suspect]
     Dosage: SEE IMAGE
     Route: 058
     Dates: start: 20061013, end: 20061108
  2. BYETTA [Suspect]
     Dosage: SEE IMAGE
     Route: 058
     Dates: start: 20061109, end: 20061112
  3. METFORMIN HCL [Concomitant]
  4. AVANDIA [Concomitant]
  5. LANTUS [Concomitant]

REACTIONS (8)
  - BLOOD GLUCOSE DECREASED [None]
  - DIZZINESS [None]
  - HEADACHE [None]
  - HYPERSOMNIA [None]
  - MEDICATION ERROR [None]
  - TREMOR [None]
  - VERTIGO [None]
  - VOMITING [None]
